FAERS Safety Report 24352581 (Version 1)
Quarter: 2024Q3

REPORT INFORMATION
  Report Type: Spontaneous
  Country: CZ (occurrence: CZ)
  Receive Date: 20240923
  Receipt Date: 20240923
  Transmission Date: 20241017
  Serious: Yes (Other)
  Sender: ISTITUTO BICHIMICO ITALIANO GIOVANNI LORENZINI (IBIGEN)
  Company Number: CZ-NOVPHSZ-PHHY2017CZ181962

PATIENT
  Age: 60 Year
  Sex: Male

DRUGS (12)
  1. GENTAMICIN [Suspect]
     Active Substance: GENTAMICIN
     Dosage: UNK ()
     Dates: start: 2017, end: 2017
  2. GENTAMICIN [Suspect]
     Active Substance: GENTAMICIN
     Indication: Endocarditis
     Dosage: UNK ()
     Dates: start: 2017, end: 2017
  3. VANCOMYCIN HYDROCHLORIDE [Suspect]
     Active Substance: VANCOMYCIN HYDROCHLORIDE
     Indication: Salmonella test positive
     Dosage: UNK ()
     Dates: end: 2017
  4. PIPERACILLIN AND TAZOBACTAM [Suspect]
     Active Substance: PIPERACILLIN SODIUM\TAZOBACTAM SODIUM
     Indication: Endocarditis
     Dosage: UNK ()
     Dates: start: 2017, end: 2017
  5. HEPARIN [Concomitant]
     Active Substance: HEPARIN SODIUM
     Indication: Haemarthrosis
     Dosage: UNK ()
  6. LINEZOLID [Suspect]
     Active Substance: LINEZOLID
     Indication: Endocarditis
     Dosage: UNK ()
     Dates: start: 2017, end: 2017
  7. AMPICILLIN [Suspect]
     Active Substance: AMPICILLIN
     Indication: Endocarditis
     Dosage: UNK ()
     Dates: start: 2017, end: 2017
  8. VANCOMYCIN HYDROCHLORIDE [Suspect]
     Active Substance: VANCOMYCIN HYDROCHLORIDE
     Indication: Antibiotic therapy
     Dosage: 1.5 G, Q12H
     Route: 042
     Dates: start: 2017
  9. CIPROFLOXACIN [Suspect]
     Active Substance: CIPROFLOXACIN
     Indication: Salmonella test positive
  10. AMPICILLIN SODIUM\SULBACTAM SODIUM [Suspect]
     Active Substance: AMPICILLIN SODIUM\SULBACTAM SODIUM
     Indication: Endocarditis
     Dosage: UNK ()
     Dates: start: 2017, end: 2017
  11. CIPROFLOXACIN [Suspect]
     Active Substance: CIPROFLOXACIN
     Indication: Endocarditis
     Dosage: 500 MG, 3X/DAY (EVERY 8 HOURS)
     Route: 048
     Dates: start: 2017, end: 2017
  12. CIPROFLOXACIN [Suspect]
     Active Substance: CIPROFLOXACIN
     Indication: Antibiotic therapy
     Dosage: UNK ()
     Dates: start: 2017, end: 2017

REACTIONS (6)
  - Hepatotoxicity [Recovered/Resolved]
  - Nutritional condition abnormal [Recovering/Resolving]
  - Drug ineffective [Recovered/Resolved]
  - Decreased appetite [Recovered/Resolved]
  - Diarrhoea [Recovered/Resolved]
  - Weight decreased [Unknown]

NARRATIVE: CASE EVENT DATE: 20170101
